FAERS Safety Report 24297173 (Version 4)
Quarter: 2025Q1

REPORT INFORMATION
  Report Type: Spontaneous
  Country: US (occurrence: US)
  Receive Date: 20240909
  Receipt Date: 20250228
  Transmission Date: 20250409
  Serious: Yes (Other)
  Sender: SANOFI AVENTIS
  Company Number: US-SA-2024SA257786

PATIENT
  Age: 54 Year
  Sex: Male

DRUGS (3)
  1. KEVZARA [Suspect]
     Active Substance: SARILUMAB
     Indication: Rheumatoid arthritis
     Dosage: 200 MG, QOW
     Route: 058
     Dates: start: 202405, end: 2024
  2. KEVZARA [Suspect]
     Active Substance: SARILUMAB
     Indication: Polymyalgia rheumatica
  3. PREDNISONE [Suspect]
     Active Substance: PREDNISONE
     Dates: end: 202411

REACTIONS (7)
  - Rheumatoid arthritis [Unknown]
  - Polymyalgia rheumatica [Unknown]
  - Mobility decreased [Unknown]
  - Pain [Unknown]
  - Fear of injection [Unknown]
  - Gait disturbance [Unknown]
  - Loss of personal independence in daily activities [Unknown]

NARRATIVE: CASE EVENT DATE: 20240101
